FAERS Safety Report 10230339 (Version 2)
Quarter: 2014Q2

REPORT INFORMATION
  Report Type: Spontaneous
  Country: US (occurrence: US)
  Receive Date: 20140611
  Receipt Date: 20140626
  Transmission Date: 20141212
  Serious: Yes (Other)
  Sender: FDA-Public Use
  Company Number: US-009507513-1406USA004989

PATIENT
  Age: 62 Year
  Sex: Female

DRUGS (8)
  1. PRINIVIL [Suspect]
     Route: 048
  2. SULFAMETHOXAZOLE (+) TRIMETHOPRIM [Interacting]
  3. DIPHENHYDRAMINE HYDROCHLORIDE [Concomitant]
  4. INSULIN [Concomitant]
  5. MIRTAZAPINE [Concomitant]
  6. LORAZEPAM [Concomitant]
  7. TRIZIVIR [Concomitant]
  8. GASTROINTESTINAL PREPARATIONS (UNSPECIFIED) [Concomitant]

REACTIONS (2)
  - Drug interaction [Recovered/Resolved]
  - Hyperkalaemia [Recovered/Resolved]
